FAERS Safety Report 25772314 (Version 1)
Quarter: 2025Q3

REPORT INFORMATION
  Report Type: Report from Study
  Country: US (occurrence: US)
  Receive Date: 20250908
  Receipt Date: 20250908
  Transmission Date: 20251021
  Serious: No
  Sender: SUNOVION
  Company Number: US-SUMITOMO PHARMA SWITZERLAND GMBH-2025SPA011296

PATIENT
  Age: 80 Year
  Sex: Male

DRUGS (9)
  1. ORGOVYX [Suspect]
     Active Substance: RELUGOLIX
     Indication: Prostate cancer
     Route: 048
  2. ORGOVYX [Suspect]
     Active Substance: RELUGOLIX
     Route: 048
  3. ELIQUIS [Concomitant]
     Active Substance: APIXABAN
  4. TAMSULOSIN [Concomitant]
     Active Substance: TAMSULOSIN
  5. LOSARTAN [Concomitant]
     Active Substance: LOSARTAN
  6. METOPROLOL [Concomitant]
     Active Substance: METOPROLOL
  7. TYLENOL [Concomitant]
     Active Substance: ACETAMINOPHEN
  8. CALCIUM [Concomitant]
     Active Substance: CALCIUM
  9. MEMANTINE [Concomitant]
     Active Substance: MEMANTINE

REACTIONS (1)
  - Diarrhoea [Unknown]
